FAERS Safety Report 5542821-8 (Version None)
Quarter: 2007Q4

REPORT INFORMATION
  Report Type: 
  Country: None (occurrence: None)
  Receive Date: 20071123
  Receipt Date: 20070302
  Transmission Date: 20080405
  Serious: Yes (Other)
  Sender: FDA-Public Use
  Company Number: US-JNJFOC-20070201227

PATIENT
  Age: 37 Year
  Sex: Male
  Weight: 106.5953 kg

DRUGS (1)
  1. LEVAQUIN [Suspect]
     Indication: BRONCHITIS
     Dosage: 500 MG, 1 IN 1 D, ORAL
     Route: 048
     Dates: start: 20070129, end: 20070131

REACTIONS (1)
  - OCULAR ICTERUS [None]
